FAERS Safety Report 20409635 (Version 2)
Quarter: 2022Q1

REPORT INFORMATION
  Report Type: Spontaneous
  Country: JP (occurrence: JP)
  Receive Date: 20220201
  Receipt Date: 20220217
  Transmission Date: 20220424
  Serious: No
  Sender: FDA-Public Use
  Company Number: JP-GSKNCCC-Case-01403429_AE-54042

PATIENT
  Age: 44 Year
  Sex: Male

DRUGS (1)
  1. SOTROVIMAB [Suspect]
     Active Substance: SOTROVIMAB
     Indication: COVID-19
     Dosage: XEVUDY 500 MG/8 ML WITH ISOTONIC SODIUM CHLORIDE SOLUTION 92 ML ADMINISTERED AT 100 ML OVER 30 MIN
     Dates: start: 20220123, end: 20220123

REACTIONS (3)
  - Injection site urticaria [Recovered/Resolved]
  - Hypotension [Recovered/Resolved]
  - Infusion related reaction [Recovered/Resolved]

NARRATIVE: CASE EVENT DATE: 20220123
